FAERS Safety Report 5236377-7 (Version None)
Quarter: 2007Q1

REPORT INFORMATION
  Report Type: 
  Country: None (occurrence: None)
  Receive Date: 20070208
  Receipt Date: 20070124
  Transmission Date: 20070707
  Serious: Yes (Other)
  Sender: FDA-Public Use
  Company Number: 2007SP001686

PATIENT
  Age: 41 Year
  Sex: Female

DRUGS (1)
  1. DESLORATADINE [Suspect]
     Indication: ECZEMA
     Dosage: 5 MG; QD; PO
     Route: 048

REACTIONS (2)
  - ALLERGY TO METALS [None]
  - BRONCHOSPASM [None]
